FAERS Safety Report 15190188 (Version 1)
Quarter: 2018Q3

REPORT INFORMATION
  Report Type: Report from Study
  Country: CA (occurrence: CA)
  Receive Date: 20180724
  Receipt Date: 20180724
  Transmission Date: 20181010
  Serious: Yes (Hospitalization)
  Sender: FDA-Public Use
  Company Number: CA-EISAI MEDICAL RESEARCH-EC-2018-040742

PATIENT
  Age: 47 Year
  Sex: Male

DRUGS (11)
  1. LENVIMA [Suspect]
     Active Substance: LENVATINIB
     Indication: THYROID CANCER
     Route: 048
     Dates: start: 20180529
  2. MORPHINE [Concomitant]
     Active Substance: MORPHINE
  3. PHOSPHATE [Concomitant]
     Active Substance: UNSPECIFIED INGREDIENT
  4. VITAMIN D [Concomitant]
     Active Substance: CHOLECALCIFEROL
  5. IRBESARTAN. [Concomitant]
     Active Substance: IRBESARTAN
  6. IMODIUM [Concomitant]
     Active Substance: LOPERAMIDE HYDROCHLORIDE
  7. SYNTHROID [Concomitant]
     Active Substance: LEVOTHYROXINE SODIUM
  8. NAPROXEN. [Concomitant]
     Active Substance: NAPROXEN
  9. PREGABALIN. [Concomitant]
     Active Substance: PREGABALIN
  10. GAVISCON [Concomitant]
     Active Substance: ALUMINUM HYDROXIDE\MAGNESIUM CARBONATE
  11. PANTOLOC [Concomitant]
     Active Substance: PANTOPRAZOLE SODIUM

REACTIONS (14)
  - Vertigo [Recovering/Resolving]
  - Hypoaesthesia [Unknown]
  - Blood phosphorus decreased [Unknown]
  - Skin lesion [Unknown]
  - Pain in extremity [Recovering/Resolving]
  - Chest pain [Unknown]
  - Headache [Recovering/Resolving]
  - Nausea [Recovering/Resolving]
  - Blood pressure increased [Not Recovered/Not Resolved]
  - Plicated tongue [Unknown]
  - Nasopharyngitis [Unknown]
  - Fatigue [Recovering/Resolving]
  - Burning sensation [Recovering/Resolving]
  - Glossodynia [Unknown]

NARRATIVE: CASE EVENT DATE: 2018
